FAERS Safety Report 4678393-X (Version None)
Quarter: 2005Q2

REPORT INFORMATION
  Report Type: 
  Country: None (occurrence: None)
  Receive Date: 20050527
  Receipt Date: 20050520
  Transmission Date: 20051028
  Serious: Yes (Hospitalization)
  Sender: FDA-Public Use
  Company Number: KII-2005-0016680

PATIENT
  Age: 41 Year
  Sex: Female

DRUGS (3)
  1. OXYCONTIN [Suspect]
     Indication: PAIN
     Dosage: SEE IMAGE
     Route: 048
  2. BENZODIAZEPINE DERIVATES [Concomitant]
     Dosage: ORAL
     Route: 048
  3. HYPNOTICS AND SEDATIVES [Concomitant]
     Dosage: ORAL
     Route: 048

REACTIONS (5)
  - HEART RATE INCREASED [None]
  - MULTIPLE DRUG OVERDOSE [None]
  - RESPIRATORY DEPRESSION [None]
  - SEDATION [None]
  - SOMNOLENCE [None]
